FAERS Safety Report 5054717-9 (Version None)
Quarter: 2006Q2

REPORT INFORMATION
  Report Type: 
  Country: None (occurrence: None)
  Receive Date: 20060614
  Receipt Date: 20060216
  Transmission Date: 20061013
  Serious: No
  Sender: FDA-Public Use
  Company Number: US200602003258

PATIENT
  Age: 64 Year
  Sex: Male

DRUGS (1)
  1. CIALIS [Suspect]
     Indication: PROPHYLAXIS
     Dosage: 20 MG
     Dates: start: 20060212

REACTIONS (4)
  - ARTHRALGIA [None]
  - BACK PAIN [None]
  - FLUSHING [None]
  - NASAL CONGESTION [None]
